FAERS Safety Report 7312298-0 (Version None)
Quarter: 2011Q1

REPORT INFORMATION
  Report Type: 
  Country: None (occurrence: None)
  Receive Date: 20110224
  Receipt Date: 20110216
  Transmission Date: 20110831
  Serious: Yes (Hospitalization)
  Sender: FDA-Public Use
  Company Number: B0701383A

PATIENT
  Age: 32 Year
  Sex: Female
  Weight: 42 kg

DRUGS (2)
  1. TEGRETOL [Suspect]
     Route: 048
     Dates: start: 20100101, end: 20101101
  2. WELLBUTRIN SR [Suspect]
     Dosage: 300MG PER DAY
     Route: 048
     Dates: start: 20070101, end: 20101202

REACTIONS (4)
  - ABDOMINAL PAIN [None]
  - HEPATOCELLULAR INJURY [None]
  - DRUG INTERACTION [None]
  - NAUSEA [None]
